FAERS Safety Report 16671852 (Version 4)
Quarter: 2019Q3

REPORT INFORMATION
  Report Type: Spontaneous
  Country: PL (occurrence: PL)
  Receive Date: 20190806
  Receipt Date: 20190903
  Transmission Date: 20191004
  Serious: Yes (Death, Other)
  Sender: FDA-Public Use
  Company Number: PL-AUROBINDO-AUR-APL-2019-045450

PATIENT

DRUGS (23)
  1. ZOLPIDEM [Suspect]
     Active Substance: ZOLPIDEM TARTRATE
     Indication: ANXIETY
     Dosage: 10 MG, AT NIGHT
     Route: 065
  2. EPERISONE [Concomitant]
     Active Substance: EPERISONE
     Indication: CANCER PAIN
     Dosage: UNK, ONCE A DAY
     Route: 065
  3. FENTANYL. [Concomitant]
     Active Substance: FENTANYL
     Indication: PRODUCT USED FOR UNKNOWN INDICATION
     Dosage: 100 MICROGRAM (100 UG TITRATED GRADUALLY TO 400 UG)
     Route: 065
     Dates: start: 201808
  4. PAMIDRONIC ACID [Suspect]
     Active Substance: PAMIDRONIC ACID
     Indication: BREAST CANCER METASTATIC
     Dosage: 90 MILLIGRAM, EVERY 28 DAYS
     Route: 042
  5. TRAMADOL. [Suspect]
     Active Substance: TRAMADOL
     Indication: PAIN MANAGEMENT
     Dosage: 75 MILLIGRAM, 8 HOUR
     Route: 048
  6. FENTANYL. [Suspect]
     Active Substance: FENTANYL
     Dosage: 100 MICROGRAM
     Route: 045
     Dates: start: 201808
  7. NALOXONE HYDROCHLORIDE;OXYCODONE HYDROCHLORIDE [Suspect]
     Active Substance: NALOXONE HYDROCHLORIDE\OXYCODONE HYDROCHLORIDE
     Indication: PAIN MANAGEMENT
     Dosage: ONE DOSE FOR EVERY 12 HOURS
     Route: 065
  8. MORPHINE SULFATE. [Suspect]
     Active Substance: MORPHINE SULFATE
     Dosage: 60 MILLIGRAM, ONCE A DAY (30 MG BID)
     Route: 065
  9. NALOXONE [Concomitant]
     Active Substance: NALOXONE
     Indication: CANCER PAIN
  10. MORPHINE SULFATE. [Suspect]
     Active Substance: MORPHINE SULFATE
     Indication: DYSPNOEA
     Dosage: UNK
     Route: 065
  11. TAMOXIFEN [Suspect]
     Active Substance: TAMOXIFEN
     Indication: BREAST CANCER METASTATIC
     Dosage: 20 MILLIGRAM, ONCE A DAY
     Route: 048
  12. PARACETAMOL [Concomitant]
     Active Substance: ACETAMINOPHEN
     Indication: CANCER PAIN
     Dosage: 650 MILLIGRAM, FOR EVERY 8 HOURS
     Route: 065
  13. NALOXONE [Concomitant]
     Active Substance: NALOXONE
     Indication: PRODUCT USED FOR UNKNOWN INDICATION
     Dosage: 5 MILLIGRAM, TWO TIMES A DAY
     Route: 065
  14. LACTULOSE. [Concomitant]
     Active Substance: LACTULOSE
     Indication: PRODUCT USED FOR UNKNOWN INDICATION
     Dosage: UNK
     Route: 065
  15. FENTANYL. [Suspect]
     Active Substance: FENTANYL
     Indication: BREAKTHROUGH PAIN
     Dosage: 400 MICROGRAM
     Route: 045
  16. OXYCODONE HYDROCHLORIDE. [Suspect]
     Active Substance: OXYCODONE HYDROCHLORIDE
     Indication: PAIN MANAGEMENT
     Dosage: 10 MILLIGRAM, TWO TIMES A DAY
     Route: 065
  17. ZOLEDRONIC ACID [Suspect]
     Active Substance: ZOLEDRONIC ACID
     Indication: BREAST CANCER METASTATIC
     Dosage: 4 MILLIGRAM, EVERY 28 DAYS
     Route: 042
  18. MORPHINE SULFATE. [Suspect]
     Active Substance: MORPHINE SULFATE
     Dosage: 30 MILLIGRAM, ONCE A DAY
     Route: 065
  19. ENOXAPARIN SODIUM. [Suspect]
     Active Substance: ENOXAPARIN SODIUM
     Indication: PRODUCT USED FOR UNKNOWN INDICATION
     Dosage: 20 MILLIGRAM, ONCE A DAY
     Route: 065
  20. ZOLPIDEM [Suspect]
     Active Substance: ZOLPIDEM TARTRATE
     Indication: PAIN MANAGEMENT
  21. MORPHINE SULFATE. [Suspect]
     Active Substance: MORPHINE SULFATE
     Indication: PAIN MANAGEMENT
     Dosage: 10 MILLIGRAM, 2-3 TIMES A DAY
     Route: 065
  22. HYDROXYZINE [Suspect]
     Active Substance: HYDROXYZINE HYDROCHLORIDE
     Indication: ANXIETY
     Dosage: 25 MILLIGRAM, ONCE A DAY
     Route: 065
  23. MIDAZOLAM [Suspect]
     Active Substance: MIDAZOLAM HYDROCHLORIDE
     Indication: ANXIETY
     Dosage: 7.5 MILLIGRAM, UNK
     Route: 048

REACTIONS (10)
  - Metastases to bone [Fatal]
  - Sedation [Fatal]
  - Constipation [Fatal]
  - Asthenia [Fatal]
  - Breast cancer metastatic [Fatal]
  - Disturbance in attention [Fatal]
  - Breakthrough pain [Fatal]
  - General physical health deterioration [Fatal]
  - Anxiety [Fatal]
  - Malignant neoplasm progression [Fatal]
